FAERS Safety Report 6520695-6 (Version None)
Quarter: 2009Q4

REPORT INFORMATION
  Report Type: 
  Country: None (occurrence: None)
  Receive Date: 20091229
  Receipt Date: 20091223
  Transmission Date: 20100525
  Serious: Yes (Death, Other)
  Sender: FDA-Public Use
  Company Number: DE-CELGENEUS-062-21880-09102442

PATIENT
  Age: 71 Year
  Sex: Female
  Weight: 71 kg

DRUGS (7)
  1. REVLIMID [Suspect]
     Indication: MULTIPLE MYELOMA
     Route: 048
     Dates: start: 20091001, end: 20091012
  2. PANTOPRAZOLE [Concomitant]
     Indication: PROPHYLAXIS
     Route: 065
     Dates: start: 20090715, end: 20091012
  3. METOCLOPRAMIDE [Concomitant]
     Indication: NAUSEA
     Route: 065
     Dates: start: 20090903, end: 20091012
  4. METOCLOPRAMIDE [Concomitant]
     Dosage: 3X2 VIALS/DAY
     Route: 051
  5. BISOPROLOL [Concomitant]
     Indication: HYPERTENSION
     Route: 065
     Dates: start: 20080101, end: 20091012
  6. OXYCODON [Concomitant]
     Indication: PAIN
     Route: 065
     Dates: start: 20090908, end: 20091012
  7. DEXAMETHASONE [Concomitant]
     Indication: MULTIPLE MYELOMA
     Route: 048
     Dates: start: 20091009, end: 20091012

REACTIONS (2)
  - PULMONARY EMBOLISM [None]
  - VOMITING [None]
